FAERS Safety Report 18541590 (Version 6)
Quarter: 2022Q1

REPORT INFORMATION
  Report Type: Report from Study
  Country: US (occurrence: US)
  Receive Date: 20201124
  Receipt Date: 20220209
  Transmission Date: 20220424
  Serious: Yes (Life-Threatening, Hospitalization, Other)
  Sender: FDA-Public Use
  Company Number: US-SHIRE-US201944754

PATIENT
  Sex: Female
  Weight: 90 kg

DRUGS (24)
  1. LANADELUMAB [Suspect]
     Active Substance: LANADELUMAB
     Indication: Hereditary angioedema
     Dosage: 300 MILLIGRAM, Q2WEEKS
     Route: 058
     Dates: start: 20181114
  2. LANADELUMAB [Suspect]
     Active Substance: LANADELUMAB
     Indication: Immune system disorder
     Dosage: 300 MILLIGRAM, Q2WEEKS
     Route: 058
     Dates: start: 20181115
  3. LANADELUMAB [Suspect]
     Active Substance: LANADELUMAB
     Dosage: 300 MILLIGRAM, Q4WEEKS
     Route: 058
     Dates: start: 20181115
  4. FIRAZYR [Suspect]
     Active Substance: ICATIBANT ACETATE
     Indication: Immune system disorder
     Dosage: 30 MILLIGRAM
     Route: 058
     Dates: start: 20140220
  5. FIRAZYR [Suspect]
     Active Substance: ICATIBANT ACETATE
     Indication: Immune system disorder
     Dosage: 30 MILLIGRAM
     Route: 058
     Dates: start: 20140220
  6. FIRAZYR [Suspect]
     Active Substance: ICATIBANT ACETATE
     Dosage: 30 MILLIGRAM, Q2WEEKS
     Route: 058
     Dates: start: 20140220
  7. FIRAZYR [Suspect]
     Active Substance: ICATIBANT ACETATE
     Dosage: 30 MILLIGRAM, Q2WEEKS
     Route: 058
     Dates: start: 20140220
  8. FIRAZYR [Suspect]
     Active Substance: ICATIBANT ACETATE
     Dosage: 30 MILLIGRAM
     Route: 058
     Dates: start: 20140221
  9. FIRAZYR [Suspect]
     Active Substance: ICATIBANT ACETATE
     Dosage: 30 MILLIGRAM
     Route: 058
     Dates: start: 20140221
  10. KALBITOR [Suspect]
     Active Substance: ECALLANTIDE
     Indication: Immune system disorder
     Dosage: 30 MILLIGRAM
     Route: 058
     Dates: start: 20180323
  11. KALBITOR [Suspect]
     Active Substance: ECALLANTIDE
     Dosage: 30 MILLIGRAM
     Route: 058
     Dates: start: 20190905
  12. LIDOCAINE [Concomitant]
     Active Substance: LIDOCAINE
  13. COLESTIPOL [Concomitant]
     Active Substance: COLESTIPOL
  14. SOMA [Concomitant]
     Active Substance: CARISOPRODOL
  15. FLOVENT [Concomitant]
     Active Substance: FLUTICASONE PROPIONATE
  16. VITAMIN C [Concomitant]
     Active Substance: ASCORBIC ACID
  17. DEXILANT [Concomitant]
     Active Substance: DEXLANSOPRAZOLE
  18. ZOFRAN [Concomitant]
     Active Substance: ONDANSETRON HYDROCHLORIDE
  19. RUCONEST [Concomitant]
     Active Substance: HUMAN C1-ESTERASE INHIBITOR
  20. LIDOCAINE [Concomitant]
     Active Substance: LIDOCAINE
  21. SOMA [Concomitant]
     Active Substance: CARISOPRODOL
  22. HEPARIN SODIUM [Concomitant]
     Active Substance: HEPARIN SODIUM
  23. AMITRIPTYLINE [Concomitant]
     Active Substance: AMITRIPTYLINE
  24. PROMETHAZINE [Concomitant]
     Active Substance: PROMETHAZINE HYDROCHLORIDE

REACTIONS (10)
  - Laryngeal oedema [Not Recovered/Not Resolved]
  - Chest injury [Recovering/Resolving]
  - Neuropathy peripheral [Unknown]
  - Fall [Recovering/Resolving]
  - Headache [Recovering/Resolving]
  - Skin laceration [Unknown]
  - Infusion related reaction [Unknown]
  - Hereditary angioedema [Not Recovered/Not Resolved]
  - Drug ineffective [Recovering/Resolving]
  - Product dose omission issue [Unknown]
